FAERS Safety Report 17308801 (Version 1)
Quarter: 2020Q1

REPORT INFORMATION
  Report Type: Spontaneous
  Country: US (occurrence: US)
  Receive Date: 20200123
  Receipt Date: 20200123
  Transmission Date: 20200409
  Serious: No
  Sender: FDA-Public Use
  Company Number: US-BRISTOL-MYERS SQUIBB COMPANY-BMS-2020-003207

PATIENT
  Sex: Female

DRUGS (1)
  1. DROXIA [Suspect]
     Active Substance: HYDROXYUREA
     Indication: PLATELET COUNT INCREASED
     Dosage: 500 MILLIGRAM, QOD
     Route: 065

REACTIONS (7)
  - Heart rate increased [Unknown]
  - Off label use [Unknown]
  - Full blood count decreased [Unknown]
  - Intentional product use issue [Unknown]
  - Dizziness [Unknown]
  - Secretion discharge [Unknown]
  - Drug tolerance decreased [Unknown]
